FAERS Safety Report 18912891 (Version 1)
Quarter: 2021Q1

REPORT INFORMATION
  Report Type: Report from Study
  Country: US (occurrence: US)
  Receive Date: 20210218
  Receipt Date: 20210218
  Transmission Date: 20210420
  Serious: Yes (Life-Threatening, Hospitalization)
  Sender: FDA-Public Use
  Company Number: US-MYLANLABS-2021M1010047

PATIENT
  Age: 74 Year
  Sex: Male
  Weight: 105.1 kg

DRUGS (8)
  1. PROTHROMBIN [Suspect]
     Active Substance: PROTHROMBIN
     Indication: TRAUMATIC INTRACRANIAL HAEMORRHAGE
  2. DESMOPRESSIN [Suspect]
     Active Substance: DESMOPRESSIN
     Indication: SUBARACHNOID HAEMORRHAGE
     Dosage: 0.41 MICROGRAM/KILOGRAM
     Route: 065
  3. WARFARIN [Suspect]
     Active Substance: WARFARIN
     Indication: ANTICOAGULANT THERAPY
     Dosage: UNK
     Route: 048
  4. CLOPIDOGREL [Suspect]
     Active Substance: CLOPIDOGREL BISULFATE
     Indication: ANTIPLATELET THERAPY
     Dosage: UNK
     Route: 065
  5. ASPIRIN                            /00002701/ [Suspect]
     Active Substance: ASPIRIN
     Indication: ANTIPLATELET THERAPY
     Dosage: 325 MILLIGRAM
     Route: 065
  6. DESMOPRESSIN [Suspect]
     Active Substance: DESMOPRESSIN
     Indication: TRAUMATIC INTRACRANIAL HAEMORRHAGE
  7. PHYTONADIONE. [Concomitant]
     Active Substance: PHYTONADIONE
     Indication: PRODUCT USED FOR UNKNOWN INDICATION
     Dosage: UNK
     Route: 042
  8. PROTHROMBIN [Suspect]
     Active Substance: PROTHROMBIN
     Indication: SUBARACHNOID HAEMORRHAGE
     Dosage: 10.4 UNITS/KG
     Route: 065

REACTIONS (3)
  - Traumatic intracranial haemorrhage [Unknown]
  - Subarachnoid haemorrhage [Unknown]
  - Off label use [Unknown]
